FAERS Safety Report 7770051-8 (Version None)
Quarter: 2011Q3

REPORT INFORMATION
  Report Type: 
  Country: None (occurrence: None)
  Receive Date: 20110922
  Receipt Date: 20110422
  Transmission Date: 20111222
  Serious: No
  Sender: FDA-Public Use
  Company Number: US-ASTRAZENECA-2011SE23559

PATIENT
  Sex: Male

DRUGS (14)
  1. LAMICTAL [Concomitant]
     Route: 048
  2. KLONOPIN [Concomitant]
  3. LISINOPRIL [Suspect]
     Route: 048
  4. NORVASC [Concomitant]
  5. BUSPAR [Concomitant]
  6. INVEGA SUSTENNA [Concomitant]
     Route: 030
  7. ZOLOFT [Concomitant]
     Dosage: 100 MG 2 TABLETS QAM
  8. MULTIPLE ANTIPSYCHOTICS [Concomitant]
  9. NEURONTIN [Concomitant]
     Route: 048
  10. AMBIEN [Concomitant]
  11. METFORMIN [Concomitant]
     Dosage: 500 MG TABLET BY MOUTH WITH BREAKFAST AND DINNER
     Route: 048
  12. SIMVASTATIN [Concomitant]
     Route: 048
  13. SEROQUEL [Suspect]
     Route: 048
  14. KLONOPIN [Concomitant]

REACTIONS (3)
  - WEIGHT INCREASED [None]
  - HYPERTENSION [None]
  - DIABETES MELLITUS [None]
